FAERS Safety Report 6962403-0 (Version None)
Quarter: 2010Q3

REPORT INFORMATION
  Report Type: 
  Country: None (occurrence: None)
  Receive Date: 20100902
  Receipt Date: 20100823
  Transmission Date: 20110219
  Serious: Yes (Other)
  Sender: FDA-Public Use
  Company Number: US-ELI_LILLY_AND_COMPANY-US201008006553

PATIENT
  Age: 43 Year
  Sex: Female
  Weight: 124.26 kg

DRUGS (26)
  1. CYMBALTA [Suspect]
     Indication: DEPRESSION
     Dosage: 60 MG, 2/D
     Route: 048
  2. LYRICA [Concomitant]
     Indication: FIBROMYALGIA
     Dosage: 150 MG, 3/D
     Route: 048
  3. LYRICA [Concomitant]
     Dosage: 150 MG, 4/D
     Route: 048
  4. LISINOPRIL [Concomitant]
     Indication: BLOOD PRESSURE
     Dosage: 10 MG, DAILY (1/D)
     Route: 048
  5. FLUTICASONE PROPIONATE [Concomitant]
     Indication: NASAL SEPTUM DEVIATION
     Route: 045
  6. SIMVASTATIN [Concomitant]
     Indication: BLOOD CHOLESTEROL
     Dosage: 40 MG, DAILY (1/D)
     Route: 048
  7. MELOXICAM [Concomitant]
     Indication: PAIN
     Dosage: 15 MG, 2/D
     Route: 048
  8. CETIRIZINE HCL [Concomitant]
     Indication: HYPERSENSITIVITY
     Dosage: 10 MG, DAILY (1/D)
     Route: 048
  9. ASPIRIN [Concomitant]
     Indication: CARDIAC DISORDER
     Dosage: 81 MG, DAILY (1/D)
     Route: 048
  10. LEVOTHYROXINE SODIUM [Concomitant]
     Indication: THYROID DISORDER
     Dosage: 50 UG, DAILY (1/D)
     Route: 048
  11. TEGRETOL [Concomitant]
     Indication: MOOD SWINGS
     Dosage: 400 MG, EACH MORNING
  12. TEGRETOL [Concomitant]
     Dosage: 400 MG, EACH EVENING
  13. PROVIGIL [Concomitant]
     Indication: FATIGUE
     Dosage: 200 MG, DAILY (1/D)
     Route: 048
  14. PROVIGIL [Concomitant]
     Dosage: 1.5 D/F, DAILY (1/D)
     Route: 048
  15. PROPRANOLOL [Concomitant]
     Indication: BLOOD PRESSURE
     Dosage: 20 MG, 2/D
     Route: 048
  16. METHOCARBAMOL [Concomitant]
     Indication: PAIN
     Dosage: 500 MG, 2/D
     Route: 048
  17. BACLOFEN [Concomitant]
     Indication: RESTLESS LEGS SYNDROME
     Dosage: 20 MG, 3/D
     Route: 048
  18. METHADOSE [Concomitant]
     Indication: PAIN
     Dosage: 10 MG, OTHER
     Route: 048
  19. MIRALAX [Concomitant]
     Indication: CONSTIPATION
     Dosage: 17 G, DAILY (1/D)
     Route: 048
  20. FISH OIL [Concomitant]
  21. VITAMIN E /001105/ [Concomitant]
  22. OMEPRAZOLE [Concomitant]
     Indication: GASTROOESOPHAGEAL REFLUX DISEASE
     Dosage: 40 MG, DAILY (1/D)
     Route: 048
  23. LIDODERM [Concomitant]
     Indication: MYALGIA
     Route: 062
  24. INSULIN DETEMIR [Concomitant]
     Indication: DIABETES MELLITUS
     Dosage: 47 U, EACH MORNING
     Route: 058
  25. INSULIN DETEMIR [Concomitant]
     Dosage: 47 U, EACH EVENING
     Route: 058
  26. MULTI-VITAMINS [Concomitant]

REACTIONS (2)
  - CONVULSION [None]
  - FIBROMYALGIA [None]
